FAERS Safety Report 25756977 (Version 1)
Quarter: 2025Q3

REPORT INFORMATION
  Report Type: Report from Study
  Country: CO (occurrence: CO)
  Receive Date: 20250903
  Receipt Date: 20250903
  Transmission Date: 20251021
  Serious: Yes (Hospitalization)
  Sender: ABBVIE
  Company Number: CO-ABBVIE-6357803

PATIENT
  Age: 68 Year
  Sex: Male

DRUGS (1)
  1. RINVOQ [Suspect]
     Active Substance: UPADACITINIB
     Indication: Colitis ulcerative
     Dosage: 2 TABLETS OF 15 MG FOR A TOTAL OF 30 MG DAILY, ?FORM STRENGTH: 15MG
     Route: 048
     Dates: start: 20240919

REACTIONS (11)
  - Arthralgia [Unknown]
  - Meniscus injury [Unknown]
  - Arthralgia [Not Recovered/Not Resolved]
  - Generalised oedema [Recovering/Resolving]
  - Peripheral swelling [Unknown]
  - Pain in extremity [Unknown]
  - Ligamentitis [Unknown]
  - Inflammation [Not Recovered/Not Resolved]
  - Foot fracture [Unknown]
  - Ankylosing spondylitis [Unknown]
  - Joint injury [Unknown]

NARRATIVE: CASE EVENT DATE: 20250601
